FAERS Safety Report 19908349 (Version 1)
Quarter: 2021Q4

REPORT INFORMATION
  Report Type: Spontaneous
  Country: US (occurrence: US)
  Receive Date: 20211002
  Receipt Date: 20211002
  Transmission Date: 20220303
  Serious: Yes (Other)
  Sender: FDA-Public Use
  Company Number: US-GLENMARK PHARMACEUTICALS-2021GMK054211

PATIENT

DRUGS (2)
  1. ESTRADIOL [Suspect]
     Active Substance: ESTRADIOL
     Indication: Cystitis interstitial
     Dosage: 10 MCG EVERY OTHER DAY
     Route: 067
     Dates: start: 2021, end: 20210501
  2. ESTRADIOL [Suspect]
     Active Substance: ESTRADIOL
     Indication: Oestrogen therapy
     Dosage: 10 MCG EVERY OTHER DAY
     Route: 067
     Dates: start: 20210505

REACTIONS (5)
  - Vulvovaginal injury [Unknown]
  - Vaginal haemorrhage [Unknown]
  - Injury associated with device [Unknown]
  - Product use in unapproved indication [Unknown]
  - Device issue [Unknown]

NARRATIVE: CASE EVENT DATE: 20210101
